FAERS Safety Report 14567891 (Version 1)
Quarter: 2018Q1

REPORT INFORMATION
  Report Type: Spontaneous
  Country: US (occurrence: US)
  Receive Date: 20180223
  Receipt Date: 20180223
  Transmission Date: 20180509
  Serious: No
  Sender: FDA-Public Use
  Company Number: US-FERRINGPH-2017FE06390

PATIENT
  Age: 57 Year
  Sex: Female
  Weight: 92.97 kg

DRUGS (2)
  1. DESMOPRESSIN [Suspect]
     Active Substance: DESMOPRESSIN
     Dosage: UNK
     Route: 065
     Dates: end: 201712
  2. DESMOPRESSIN [Suspect]
     Active Substance: DESMOPRESSIN
     Indication: DIABETES INSIPIDUS
     Dosage: 1 TO 3 SPRAYS, DAILY
     Route: 045
     Dates: start: 201712

REACTIONS (3)
  - Product label issue [Unknown]
  - Physical product label issue [Unknown]
  - Product storage error [Unknown]

NARRATIVE: CASE EVENT DATE: 201712
